FAERS Safety Report 8408762-3 (Version None)
Quarter: 2012Q2

REPORT INFORMATION
  Report Type: 
  Country: None (occurrence: None)
  Receive Date: 20120604
  Receipt Date: 20120522
  Transmission Date: 20120825
  Serious: Yes (Hospitalization)
  Sender: FDA-Public Use
  Company Number: JP-ELI_LILLY_AND_COMPANY-JP201204008837

PATIENT
  Sex: Female
  Weight: 40 kg

DRUGS (42)
  1. CYMBALTA [Concomitant]
     Indication: DEPRESSION
     Dosage: 20 MG, QD
     Route: 048
     Dates: start: 20101015, end: 20101021
  2. CYMBALTA [Concomitant]
     Dosage: 60 MG, QD
     Route: 048
     Dates: start: 20101112, end: 20110217
  3. CYMBALTA [Concomitant]
     Dosage: 60 MG, QD
     Route: 048
     Dates: start: 20110419, end: 20110623
  4. ZOLOFT [Concomitant]
     Dosage: 25 MG, QD
     Dates: start: 20101113, end: 20101119
  5. LORAZEPAM [Concomitant]
     Dosage: 1.5 MG, UNK
     Dates: end: 20101223
  6. NITRAZEPAM [Concomitant]
     Dosage: 5 MG, QD
     Dates: start: 20110603
  7. CYMBALTA [Concomitant]
     Dosage: 40 MG, QD
     Route: 048
     Dates: start: 20110218, end: 20110310
  8. CYMBALTA [Concomitant]
     Dosage: 30 MG, QD
     Route: 048
     Dates: start: 20110311, end: 20110407
  9. CYMBALTA [Concomitant]
     Dosage: 30 MG, QD
     Route: 048
     Dates: start: 20110627, end: 20110704
  10. NORTRIPTYLINE HCL [Concomitant]
     Dosage: 25 MG, QD
     Dates: start: 20101105, end: 20101118
  11. NORTRIPTYLINE HCL [Concomitant]
     Dosage: 25 MG, QD
     Dates: start: 20110204, end: 20110310
  12. NORTRIPTYLINE HCL [Concomitant]
     Dosage: 62.5 MG, QD
     Dates: start: 20110602, end: 20110609
  13. LORAZEPAM [Concomitant]
     Dosage: 1 MG, QD
     Dates: start: 20101224, end: 20110128
  14. ZYPREXA [Suspect]
     Dosage: 15 MG, QD
     Dates: start: 20110603, end: 20110623
  15. CYMBALTA [Concomitant]
     Dosage: 20 MG, QD
     Route: 048
     Dates: start: 20110705, end: 20110708
  16. ZOLOFT [Concomitant]
     Dosage: 75 MG, QD
     Dates: start: 20101029, end: 20101104
  17. ZOLOFT [Concomitant]
     Dosage: 50 MG, QD
     Dates: start: 20101105, end: 20101112
  18. NORTRIPTYLINE HCL [Concomitant]
     Dosage: 75 MG, QD
     Dates: start: 20101126, end: 20101202
  19. NORTRIPTYLINE HCL [Concomitant]
     Dosage: 12.5 MG, QD
     Dates: start: 20110311, end: 20110525
  20. RISPERDAL [Concomitant]
     Indication: HALLUCINATION
     Dosage: 1 MG, QD
     Dates: start: 20110524, end: 20110524
  21. ZOLOFT [Concomitant]
     Dosage: 100 MG, QD
     Dates: end: 20101028
  22. NORTRIPTYLINE HCL [Concomitant]
     Dosage: 50 MG, QD
     Dates: start: 20101119, end: 20101125
  23. NORTRIPTYLINE HCL [Concomitant]
     Dosage: 75 MG, QD
     Dates: start: 20101224, end: 20110127
  24. ZYPREXA [Suspect]
     Indication: DELUSION
     Dosage: 10 MG, QD
     Dates: start: 20101115, end: 20101125
  25. CYMBALTA [Concomitant]
     Dosage: 30 MG, QD
     Route: 048
     Dates: start: 20101022, end: 20111028
  26. CYMBALTA [Concomitant]
     Dosage: 40 MG, QD
     Route: 048
     Dates: start: 20101029, end: 20101111
  27. LORAZEPAM [Concomitant]
     Dosage: 2 MG, QD
     Dates: start: 20110610
  28. RISPERDAL [Concomitant]
     Dosage: 2 MG, QD
     Dates: start: 20110525, end: 20110708
  29. ZYPREXA [Suspect]
     Dosage: 15 MG, QD
     Dates: start: 20101126, end: 20101202
  30. ZYPREXA [Suspect]
     Dosage: 10 MG, QD
     Dates: start: 20110624, end: 20110626
  31. ZYPREXA [Suspect]
     Dosage: 5 MG, QD
     Dates: start: 20110627, end: 20110629
  32. NORTRIPTYLINE HCL [Concomitant]
     Dosage: 50 MG, QD
     Dates: start: 20110128, end: 20110203
  33. SEROQUEL [Concomitant]
     Indication: SLEEP DISORDER
     Dosage: 25 MG, QD
     Dates: end: 20101126
  34. ZYPREXA [Suspect]
     Dosage: 17.5 MG, QD
     Dates: start: 20110225, end: 20110602
  35. NORTRIPTYLINE HCL [Concomitant]
     Dosage: 100 MG, QD
     Dates: start: 20101203, end: 20101223
  36. NORTRIPTYLINE HCL [Concomitant]
     Dosage: 50 MG, QD
     Dates: start: 20110530, end: 20110601
  37. NORTRIPTYLINE HCL [Concomitant]
     Dosage: 50 MG, QD
     Dates: start: 20110610
  38. ZYPREXA [Suspect]
     Dosage: 20 MG, QD
     Dates: start: 20101203, end: 20110224
  39. ZYPREXA [Suspect]
     Dosage: 2.5 MG, QD
     Dates: start: 20110630, end: 20110702
  40. CYMBALTA [Concomitant]
     Dosage: 40 MG, QD
     Route: 048
     Dates: start: 20110408, end: 20110418
  41. CYMBALTA [Concomitant]
     Dosage: 40 MG, QD
     Route: 048
     Dates: start: 20110624, end: 20110626
  42. NORTRIPTYLINE HCL [Concomitant]
     Dosage: 25 MG, QD
     Dates: start: 20110527, end: 20110529

REACTIONS (6)
  - OFF LABEL USE [None]
  - BIPOLAR I DISORDER [None]
  - HALLUCINATION [None]
  - SUBILEUS [None]
  - PSYCHOTIC DISORDER [None]
  - ALANINE AMINOTRANSFERASE INCREASED [None]
